FAERS Safety Report 6245465-8 (Version None)
Quarter: 2009Q2

REPORT INFORMATION
  Report Type: 
  Country: None (occurrence: None)
  Receive Date: 20090625
  Receipt Date: 20090615
  Transmission Date: 20091009
  Serious: Yes (Other)
  Sender: FDA-Public Use
  Company Number: PHHY2009BR24339

PATIENT
  Sex: Female

DRUGS (2)
  1. DIOVAN HCT [Suspect]
     Dosage: 160/12.5 MG
     Dates: start: 20070101
  2. DIOVAN HCT [Suspect]
     Dosage: 160/25 MG
     Dates: start: 20070101

REACTIONS (3)
  - BLOOD PRESSURE FLUCTUATION [None]
  - DRUG DISPENSING ERROR [None]
  - RENAL DISORDER [None]
